FAERS Safety Report 23308574 (Version 1)
Quarter: 2023Q4

REPORT INFORMATION
  Report Type: Spontaneous
  Country: FR (occurrence: FR)
  Receive Date: 20231218
  Receipt Date: 20231218
  Transmission Date: 20240110
  Serious: Yes (Hospitalization)
  Sender: FDA-Public Use
  Company Number: None

PATIENT
  Age: 28 Year

DRUGS (9)
  1. TRAMADOL HYDROCHLORIDE [Suspect]
     Active Substance: TRAMADOL HYDROCHLORIDE
     Route: 065
  2. CYAMEMAZINE [Suspect]
     Active Substance: CYAMEMAZINE
     Route: 065
  3. FENTANYL [Suspect]
     Active Substance: FENTANYL\FENTANYL CITRATE
     Route: 065
  4. CANNABIS SATIVA SUBSP. INDICA TOP [Suspect]
     Active Substance: CANNABIS SATIVA SUBSP. INDICA TOP
     Route: 065
  5. ACUPAN [Suspect]
     Active Substance: NEFOPAM HYDROCHLORIDE
     Route: 065
  6. ZOPICLONE [Suspect]
     Active Substance: ZOPICLONE
     Route: 065
  7. TRIMEPRAZINE [Suspect]
     Active Substance: TRIMEPRAZINE
     Route: 065
  8. DAFALGAN CODEINE [Suspect]
     Active Substance: ACETAMINOPHEN\CODEINE PHOSPHATE
     Route: 065
  9. DIAZEPAM [Suspect]
     Active Substance: DIAZEPAM
     Route: 065

REACTIONS (3)
  - Drug dependence [Unknown]
  - Coma [Recovered/Resolved]
  - Poisoning [Recovered/Resolved]

NARRATIVE: CASE EVENT DATE: 20230525
